FAERS Safety Report 24654595 (Version 4)
Quarter: 2025Q4

REPORT INFORMATION
  Report Type: Report from Study
  Country: EU (occurrence: EU)
  Receive Date: 20241122
  Receipt Date: 20251229
  Transmission Date: 20260119
  Serious: Yes (Death, Hospitalization, Other)
  Sender: PFIZER
  Company Number: EU-PFM-2024-04856

PATIENT
  Age: 34 Year
  Sex: Male

DRUGS (9)
  1. ENCORAFENIB [Suspect]
     Active Substance: ENCORAFENIB
     Indication: Malignant melanoma
     Dosage: 450 MG, QD (1/DAY)
     Route: 048
     Dates: start: 20240328, end: 20240923
  2. BINIMETINIB [Suspect]
     Active Substance: BINIMETINIB
     Indication: Malignant melanoma
     Dosage: 45 MG, BID (2/DAY)
     Route: 048
     Dates: start: 20240328, end: 20240923
  3. PREGABALIN [Concomitant]
     Active Substance: PREGABALIN
     Dosage: UNK
     Route: 065
  4. MELPERONE [Concomitant]
     Active Substance: MELPERONE
     Dosage: UNK
     Route: 065
  5. ESCITALOPRAM OXALATE [Concomitant]
     Active Substance: ESCITALOPRAM OXALATE
     Dosage: UNK
     Route: 065
  6. METAMIZOL [Concomitant]
     Active Substance: METAMIZOLE SODIUM
     Dosage: UNK
     Route: 065
  7. HYDROMORPHONE [Concomitant]
     Active Substance: HYDROMORPHONE
     Indication: Tumour pain
     Dosage: UNK
     Route: 065
     Dates: start: 20240913, end: 20241101
  8. DEXAMETHASONE SODIUM PHOSPHATE [Concomitant]
     Active Substance: DEXAMETHASONE SODIUM PHOSPHATE
     Indication: Metastasis
     Dosage: UNK
     Route: 065
  9. POLYETHYLENE GLYCOLS [Concomitant]
     Active Substance: POLYETHYLENE GLYCOLS
     Indication: Prophylaxis
     Dosage: UNK
     Route: 065

REACTIONS (3)
  - Death [Fatal]
  - Iron deficiency anaemia [Not Recovered/Not Resolved]
  - Lower limb fracture [Unknown]

NARRATIVE: CASE EVENT DATE: 20240819
